FAERS Safety Report 6572472-8 (Version None)
Quarter: 2010Q1

REPORT INFORMATION
  Report Type: 
  Country: None (occurrence: None)
  Receive Date: 20100205
  Receipt Date: 20100203
  Transmission Date: 20100710
  Serious: Yes (Hospitalization, Disabling)
  Sender: FDA-Public Use
  Company Number: US-MERCK-0805USA01253

PATIENT
  Age: 62 Year
  Sex: Female
  Weight: 63 kg

DRUGS (4)
  1. FOSAMAX [Suspect]
     Indication: OSTEOPOROSIS
     Route: 048
     Dates: start: 20000131, end: 20010101
  2. FOSAMAX [Suspect]
     Route: 048
     Dates: start: 20011001, end: 20040101
  3. FOSAMAX [Suspect]
     Route: 048
     Dates: start: 20041101, end: 20060613
  4. [THERAPY UNSPECIFIED] [Concomitant]
     Indication: HYPERTENSION
     Route: 065
     Dates: start: 20000112, end: 20000501

REACTIONS (30)
  - ABDOMINAL PAIN UPPER [None]
  - ADVERSE DRUG REACTION [None]
  - ARRHYTHMIA [None]
  - ARTHRALGIA [None]
  - ATELECTASIS [None]
  - BALANCE DISORDER [None]
  - BLOOD TRIGLYCERIDES INCREASED [None]
  - CARDIAC DISORDER [None]
  - COSTOCHONDRITIS [None]
  - DYSPHAGIA [None]
  - DYSPNOEA [None]
  - EAR PAIN [None]
  - FATIGUE [None]
  - HAND FRACTURE [None]
  - HEART RATE IRREGULAR [None]
  - INTERSTITIAL LUNG DISEASE [None]
  - LIPIDS INCREASED [None]
  - LUNG DISORDER [None]
  - LUNG INFILTRATION [None]
  - OESOPHAGEAL DISORDER [None]
  - ORAL TORUS [None]
  - OSTEONECROSIS [None]
  - PARAESTHESIA [None]
  - PERIODONTITIS [None]
  - PLANTAR FASCIITIS [None]
  - POISONING [None]
  - SICK SINUS SYNDROME [None]
  - SINUS BRADYCARDIA [None]
  - SYNCOPE [None]
  - TINNITUS [None]
